FAERS Safety Report 5206889-0 (Version None)
Quarter: 2006Q4

REPORT INFORMATION
  Report Type: 
  Country: None (occurrence: None)
  Receive Date: 20061030
  Receipt Date: 20060717
  Transmission Date: 20070319
  Serious: No
  Sender: FDA-Public Use
  Company Number: 255014

PATIENT
  Age: 76 Year
  Sex: Male
  Weight: 125.6 kg

DRUGS (3)
  1. LEVEMIR [Suspect]
     Indication: INSULIN-REQUIRING TYPE II DIABETES MELLITUS
     Dosage: UNK, LU, QD, SUBCUTANEOUS
     Route: 058
     Dates: start: 20060601
  2. LANTUS [Concomitant]
  3. GLUCOPHAGE [Concomitant]

REACTIONS (2)
  - PRURITUS [None]
  - URTICARIA [None]
